FAERS Safety Report 12419406 (Version 1)
Quarter: 2016Q2

REPORT INFORMATION
  Report Type: Spontaneous
  Country: GB (occurrence: GB)
  Receive Date: 20160531
  Receipt Date: 20160531
  Transmission Date: 20160815
  Serious: Yes (Life-Threatening)
  Sender: FDA-Public Use
  Company Number: GB-ACTAVIS-2016-11240

PATIENT
  Age: 47 Year
  Sex: Female
  Weight: 84.6 kg

DRUGS (1)
  1. PACLITAXEL (UNKNOWN) [Suspect]
     Active Substance: PACLITAXEL
     Indication: MALIGNANT PERITONEAL NEOPLASM
     Dosage: 220 MG, UNKNOWN
     Route: 042
     Dates: start: 20160504, end: 20160504

REACTIONS (5)
  - Erythema [Recovered/Resolved]
  - Hot flush [Recovered/Resolved]
  - Back pain [Recovered/Resolved]
  - Malaise [Recovered/Resolved]
  - Dyspnoea [Recovered/Resolved]

NARRATIVE: CASE EVENT DATE: 20160504
